FAERS Safety Report 4617533-5 (Version None)
Quarter: 2005Q1

REPORT INFORMATION
  Report Type: 
  Country: None (occurrence: None)
  Receive Date: 20050322
  Receipt Date: 20050306
  Transmission Date: 20050727
  Serious: Yes (Death, Other)
  Sender: FDA-Public Use
  Company Number: 2005042525

PATIENT
  Age: 55 Year
  Sex: Female

DRUGS (3)
  1. VORICONAZOLE (VORICONAZOLE) [Suspect]
     Indication: ANTIFUNGAL PROPHYLAXIS
     Dosage: 400 MG (200 MG, 2 IN 1 D), ORAL
     Route: 048
  2. MYCOPHENOLATE MOFETIL (MYCOPHENOLATE MOFETIL) [Concomitant]
  3. CYCLOSPORINE [Concomitant]

REACTIONS (9)
  - CANDIDIASIS [None]
  - CYTOMEGALOVIRUS INFECTION [None]
  - DIARRHOEA [None]
  - FEBRILE NEUTROPENIA [None]
  - GRAFT VERSUS HOST DISEASE [None]
  - MENTAL STATUS CHANGES [None]
  - PNEUMONIA FUNGAL [None]
  - RASH MACULO-PAPULAR [None]
  - ZYGOMYCOSIS [None]
